FAERS Safety Report 17811466 (Version 1)
Quarter: 2020Q2

REPORT INFORMATION
  Report Type: Spontaneous
  Country: US (occurrence: US)
  Receive Date: 20200521
  Receipt Date: 20200521
  Transmission Date: 20200714
  Serious: No
  Sender: FDA-Public Use
  Company Number: US-PFIZER INC-2020200228

PATIENT
  Age: 54 Year
  Sex: Female
  Weight: 74.84 kg

DRUGS (1)
  1. LIOTHYRONINE SODIUM. [Suspect]
     Active Substance: LIOTHYRONINE SODIUM
     Indication: AUTOIMMUNE THYROIDITIS
     Dosage: UNK  (TAKE ON IN THE MORNING AND ONE AT NIGHT)

REACTIONS (5)
  - Somnolence [Recovered/Resolved]
  - Insomnia [Recovered/Resolved]
  - Depression [Unknown]
  - Drug ineffective [Unknown]
  - Weight increased [Recovered/Resolved]
